FAERS Safety Report 5050558-7 (Version None)
Quarter: 2006Q3

REPORT INFORMATION
  Report Type: 
  Country: None (occurrence: None)
  Receive Date: 20060713
  Receipt Date: 20060129
  Transmission Date: 20061208
  Serious: Yes (Hospitalization, Other)
  Sender: FDA-Public Use
  Company Number: FR-GLAXOSMITHKLINE-B0409613A

PATIENT
  Age: 66 Year
  Sex: Male

DRUGS (5)
  1. SERETIDE DISKUS [Suspect]
     Indication: BRONCHIAL HYPERREACTIVITY
     Dosage: 1PUFF TWICE PER DAY
     Route: 055
     Dates: start: 20050701, end: 20051201
  2. NORVIR [Suspect]
     Indication: HIV INFECTION
     Dosage: 100MG PER DAY
     Route: 048
     Dates: start: 20050701
  3. EPIVIR [Concomitant]
     Indication: HIV INFECTION
     Dosage: 300MG PER DAY
     Route: 048
     Dates: start: 20050701
  4. REYATAZ [Concomitant]
     Indication: HIV INFECTION
     Dosage: 300MG PER DAY
     Route: 048
     Dates: start: 20050701
  5. VIDEX [Concomitant]
     Indication: HIV INFECTION
     Dosage: 400MG PER DAY
     Route: 048
     Dates: start: 20050701

REACTIONS (10)
  - ADRENAL INSUFFICIENCY [None]
  - AMYOTROPHY [None]
  - CENTRAL OBESITY [None]
  - CUSHING'S SYNDROME [None]
  - DEPRESSION [None]
  - DRUG INTERACTION [None]
  - HYPERTENSION [None]
  - LIPOHYPERTROPHY [None]
  - OSTEOPOROSIS [None]
  - SPINAL COMPRESSION FRACTURE [None]
